FAERS Safety Report 8304726 (Version 3)
Quarter: 2012Q4

REPORT INFORMATION
  Report Type: 
  Country: US (occurrence: US)
  Receive Date: 20111221
  Receipt Date: 20121210
  Transmission Date: 20130627
  Serious: Yes (Other)
  Sender: FDA-Public Use
  Company Number: US-ROCHE-1021093

PATIENT

DRUGS (6)
  1. RITUXIMAB [Suspect]
     Indication: MANTLE CELL LYMPHOMA
     Route: 042
  2. RITUXIMAB [Suspect]
     Indication: LEUKAEMIA
  3. CLADRIBINE [Suspect]
     Indication: MANTLE CELL LYMPHOMA
     Route: 042
  4. CLADRIBINE [Suspect]
     Indication: LEUKAEMIA
  5. VORINOSTAT [Suspect]
     Indication: MANTLE CELL LYMPHOMA
     Route: 048
  6. VORINOSTAT [Suspect]
     Indication: LEUKAEMIA

REACTIONS (7)
  - Embolism [Unknown]
  - Pulmonary haemorrhage [Unknown]
  - Thrombocytopenia [Unknown]
  - Neutropenia [Unknown]
  - Fatigue [Unknown]
  - Decreased appetite [Unknown]
  - Dehydration [Unknown]
